FAERS Safety Report 18975793 (Version 1)
Quarter: 2021Q1

REPORT INFORMATION
  Report Type: Spontaneous
  Country: SE (occurrence: SE)
  Receive Date: 20210305
  Receipt Date: 20210305
  Transmission Date: 20210420
  Serious: Yes (Other)
  Sender: FDA-Public Use
  Company Number: SE-PFIZER INC-2021225985

PATIENT
  Age: 49 Year
  Sex: Female
  Weight: 80 kg

DRUGS (3)
  1. VENLAFAXINE HCL [Suspect]
     Active Substance: VENLAFAXINE HYDROCHLORIDE
     Dosage: 150 MG, 1X/DAY (2 DOSAGE FORMS ONCE DAILY UNTIL 23DEC2020)
     Dates: start: 202011, end: 20201223
  2. VENLAFAXINE HCL [Suspect]
     Active Substance: VENLAFAXINE HYDROCHLORIDE
     Indication: CHRONIC FATIGUE SYNDROME
     Dosage: 75 MG, 1X/DAY (1 DOSAGE FORM ONCE DAILY FOR 1 WEEK)
     Dates: start: 20201111, end: 202011
  3. VENLAFAXINE HCL [Suspect]
     Active Substance: VENLAFAXINE HYDROCHLORIDE
     Dosage: TAPERING DOWN
     Dates: start: 202012

REACTIONS (12)
  - Dizziness [Recovering/Resolving]
  - Hypertension [Recovering/Resolving]
  - Abdominal pain [Recovering/Resolving]
  - Paraesthesia [Recovering/Resolving]
  - Vomiting [Recovering/Resolving]
  - Nausea [Recovering/Resolving]
  - Fatigue [Recovering/Resolving]
  - Withdrawal syndrome [Recovering/Resolving]
  - Headache [Recovering/Resolving]
  - Loss of libido [Recovering/Resolving]
  - Off label use [Unknown]
  - Vision blurred [Recovering/Resolving]
